FAERS Safety Report 9053519 (Version 2)
Quarter: 2013Q4

REPORT INFORMATION
  Report Type: Report from Study
  Country: BR (occurrence: BR)
  Receive Date: 20130208
  Receipt Date: 20131129
  Transmission Date: 20140711
  Serious: Yes (Other)
  Sender: FDA-Public Use
  Company Number: PHHY2013BR010912

PATIENT
  Sex: Female
  Weight: 82 kg

DRUGS (13)
  1. ACLASTA [Suspect]
     Indication: OSTEOPOROSIS
     Dosage: 5 MG
     Route: 042
  2. ACLASTA [Suspect]
     Indication: OSTEOARTHRITIS
  3. ACLASTA [Suspect]
     Indication: OFF LABEL USE
  4. MICARDIS [Concomitant]
     Dosage: UNK UKN, UNK
     Dates: start: 2008
  5. SELOZOK [Concomitant]
     Dosage: 100 MG, UNK
     Dates: start: 2010
  6. CRESTOR [Concomitant]
     Dosage: 10 MG
     Dates: start: 2010
  7. VASCLIN [Concomitant]
     Dosage: UNK UKN, UNK
     Dates: start: 2010
  8. RIVOTRIL [Concomitant]
     Dosage: UNK UKN, UNK
     Dates: start: 2008
  9. BEROTEC [Concomitant]
     Dosage: UNK UKN, UNK
  10. BETASERC [Concomitant]
     Dosage: UNK UKN, UNK
     Dates: start: 2006
  11. COLLAGEN [Concomitant]
     Dosage: UNK UKN, UNK
  12. CHONDROITIN [Concomitant]
     Dosage: UNK UKN, UNK
  13. MINERALS NOS W/VITAMINS NOS [Concomitant]
     Dosage: UNK UKN, UNK
     Dates: start: 2011

REACTIONS (11)
  - Fall [Recovered/Resolved]
  - Sluggishness [Recovered/Resolved]
  - Blood calcium increased [Recovered/Resolved]
  - Abasia [Recovered/Resolved]
  - Osteoarthritis [Recovered/Resolved]
  - Pain [Recovered/Resolved]
  - Dizziness [Recovered/Resolved]
  - Pyrexia [Recovered/Resolved]
  - Malaise [Recovered/Resolved]
  - Influenza [Recovered/Resolved]
  - Headache [Recovered/Resolved]
